FAERS Safety Report 7837321 (Version 3)
Quarter: 2014Q4

REPORT INFORMATION
  Report Type: Spontaneous
  Country: US (occurrence: US)
  Receive Date: 20110302
  Receipt Date: 20141104
  Transmission Date: 20150529
  Serious: Yes (Hospitalization, Other)
  Sender: FDA-Public Use
  Company Number: US-ASTRAZENECA-2011SE10164

PATIENT
  Age: 63 Year
  Sex: Female
  Weight: 80.7 kg

DRUGS (9)
  1. VITAMIN D [Concomitant]
     Active Substance: CHOLECALCIFEROL
     Indication: VITAMIN SUPPLEMENTATION
  2. FISH OIL [Concomitant]
     Active Substance: FISH OIL
     Indication: BLOOD CHOLESTEROL INCREASED
  3. OMPERAZOLE OTC [Suspect]
     Active Substance: OMEPRAZOLE
     Route: 048
  4. ZESTRIL [Suspect]
     Active Substance: LISINOPRIL
     Indication: BLOOD CHOLESTEROL INCREASED
     Route: 048
     Dates: start: 2011, end: 2011
  5. METOPROLOL TARTRATE. [Suspect]
     Active Substance: METOPROLOL TARTRATE
     Indication: HYPERTENSION
     Route: 048
     Dates: start: 2011
  6. FENOFIBRATE. [Concomitant]
     Active Substance: FENOFIBRATE
     Indication: BLOOD CHOLESTEROL INCREASED
     Route: 048
     Dates: start: 2011
  7. COQ10 [Concomitant]
     Active Substance: UBIDECARENONE
     Indication: ARTHRITIS
     Route: 048
  8. LOVASTATIN. [Concomitant]
     Active Substance: LOVASTATIN
  9. NEXIUM [Suspect]
     Active Substance: ESOMEPRAZOLE MAGNESIUM
     Indication: GASTROOESOPHAGEAL REFLUX DISEASE
     Route: 048
     Dates: start: 2012, end: 201410

REACTIONS (7)
  - Basal cell carcinoma [Unknown]
  - Gastrooesophageal reflux disease [Unknown]
  - Urinary tract infection [Unknown]
  - Intentional product misuse [Unknown]
  - Cough [Unknown]
  - Product use issue [Unknown]
  - Off label use [None]

NARRATIVE: CASE EVENT DATE: 2011
